FAERS Safety Report 9967821 (Version 1)
Quarter: 2014Q1

REPORT INFORMATION
  Report Type: Report from Study
  Country: US (occurrence: US)
  Receive Date: 20140306
  Receipt Date: 20140306
  Transmission Date: 20141002
  Serious: No
  Sender: FDA-Public Use
  Company Number: US-ABBVIE-13P-163-1141397-00

PATIENT
  Age: 63 Year
  Sex: Female
  Weight: 59.02 kg

DRUGS (7)
  1. HUMIRA [Suspect]
     Indication: PSORIATIC ARTHROPATHY
     Dosage: 4 MONTHS
     Dates: start: 201304, end: 201308
  2. HUMIRA [Suspect]
     Indication: RHEUMATOID ARTHRITIS
  3. CYMBALTA [Concomitant]
     Indication: ANXIETY
  4. ZANAFLEX [Concomitant]
     Indication: MUSCLE SPASMS
  5. ATAREX [Concomitant]
     Indication: PRURITUS
  6. LEVSIN [Concomitant]
     Indication: IRRITABLE BOWEL SYNDROME
  7. ULTRABEAT HALOBETASOL PROP [Concomitant]
     Indication: PRODUCT USED FOR UNKNOWN INDICATION

REACTIONS (6)
  - Haemorrhage [Not Recovered/Not Resolved]
  - Contusion [Not Recovered/Not Resolved]
  - Back pain [Not Recovered/Not Resolved]
  - Drug ineffective [Not Recovered/Not Resolved]
  - Haemorrhage [Not Recovered/Not Resolved]
  - Contusion [Not Recovered/Not Resolved]
